FAERS Safety Report 15203912 (Version 2)
Quarter: 2018Q3

REPORT INFORMATION
  Report Type: Report from Study
  Country: US (occurrence: US)
  Receive Date: 20180726
  Receipt Date: 20180831
  Transmission Date: 20181010
  Serious: Yes (Death, Life-Threatening, Hospitalization, Disabling, Congenital Anomaly, Other)
  Sender: FDA-Public Use
  Company Number: US-GILEAD-2018-0351377

PATIENT
  Age: 63 Year
  Sex: Female
  Weight: 60.32 kg

DRUGS (18)
  1. SILDENAFIL. [Concomitant]
     Active Substance: SILDENAFIL
  2. MORPHINE [Concomitant]
     Active Substance: MORPHINE
  3. OXYGEN. [Concomitant]
     Active Substance: OXYGEN
  4. CEFTIN [Concomitant]
     Active Substance: CEFUROXIME AXETIL
  5. POTASSIUM CHLORIDE. [Concomitant]
     Active Substance: POTASSIUM CHLORIDE
  6. AMBRISENTAN [Suspect]
     Active Substance: AMBRISENTAN
     Indication: PORTOPULMONARY HYPERTENSION
     Dosage: 5 MG, QD
     Route: 048
     Dates: start: 20180607, end: 20180620
  7. AMIODARONE [Concomitant]
     Active Substance: AMIODARONE
  8. ASPIRIN                            /00002701/ [Concomitant]
     Active Substance: ASPIRIN
  9. AUGMENTIN [Concomitant]
     Active Substance: AMOXICILLIN\CLAVULANATE POTASSIUM
  10. FERROUS SULFATE. [Concomitant]
     Active Substance: FERROUS SULFATE
  11. BUMEX [Concomitant]
     Active Substance: BUMETANIDE
  12. BENTYL [Concomitant]
     Active Substance: DICYCLOMINE HYDROCHLORIDE
  13. ALBUTEROL                          /00139501/ [Concomitant]
     Active Substance: ALBUTEROL
  14. BISOPROLOL [Concomitant]
     Active Substance: BISOPROLOL
  15. ISOSORBIDE MONONITRATE. [Concomitant]
     Active Substance: ISOSORBIDE MONONITRATE
  16. DOXICYCLINE                        /00055701/ [Concomitant]
     Active Substance: DOXYCYCLINE
  17. IPRATROPIUM [Concomitant]
     Active Substance: IPRATROPIUM
  18. PREDNISONE. [Concomitant]
     Active Substance: PREDNISONE

REACTIONS (3)
  - Cardiac arrest [Fatal]
  - Life support [Unknown]
  - Hypoxic-ischaemic encephalopathy [Fatal]

NARRATIVE: CASE EVENT DATE: 20180618
